FAERS Safety Report 6816396-7 (Version None)
Quarter: 2010Q3

REPORT INFORMATION
  Report Type: 
  Country: None (occurrence: None)
  Receive Date: 20100705
  Receipt Date: 20100630
  Transmission Date: 20110219
  Serious: Yes (Death)
  Sender: FDA-Public Use
  Company Number: PHEH2010US01338

PATIENT
  Sex: Female

DRUGS (16)
  1. GLEEVEC [Suspect]
     Indication: CHRONIC MYELOID LEUKAEMIA
     Dosage: 400 MG, QD
     Route: 048
  2. HYDREA [Concomitant]
     Dosage: 500, QOD
     Dates: start: 20071105
  3. LIPITOR [Concomitant]
     Dosage: UNK
     Dates: start: 20071105
  4. ATENOLOL [Concomitant]
     Dosage: UNK
     Dates: start: 20071105
  5. LASIX [Concomitant]
     Dosage: UNK
     Dates: start: 20071105
  6. OXYBUTYN [Concomitant]
     Dosage: UNK
     Dates: start: 20071105
  7. AMITRIPTYLINE [Concomitant]
     Dosage: UNK
     Dates: start: 20071105
  8. NEXIUM [Concomitant]
     Dosage: UNK
     Dates: start: 20071105
  9. COUMADIN [Concomitant]
     Dosage: UNK
     Dates: start: 20071105
  10. NOVOLIN [Concomitant]
     Dosage: UNK
     Dates: start: 20071105
  11. SIMVASTATIN [Concomitant]
  12. HUMULIN 70/30 [Concomitant]
  13. GLEEVEC [Concomitant]
  14. PRAVASTATIN [Concomitant]
  15. STOOL SOFTENER [Concomitant]
  16. CALCIUM D [Concomitant]

REACTIONS (1)
  - DEATH [None]
